FAERS Safety Report 15956667 (Version 1)
Quarter: 2019Q1

REPORT INFORMATION
  Report Type: Spontaneous
  Country: US (occurrence: US)
  Receive Date: 20190213
  Receipt Date: 20190213
  Transmission Date: 20190417
  Serious: No
  Sender: FDA-Public Use
  Company Number: US-BAYER-2019-031433

PATIENT
  Age: 81 Year
  Sex: Female
  Weight: 73 kg

DRUGS (1)
  1. MIRALAX [Suspect]
     Active Substance: POLYETHYLENE GLYCOL 3350
     Indication: GASTROINTESTINAL DISORDER
     Dosage: MIXED WITH TAP WATER AT ROOM TEMPERATURE DOSE
     Route: 048
     Dates: start: 201901, end: 20190212

REACTIONS (2)
  - Wrong technique in product usage process [None]
  - Poor quality product administered [Unknown]

NARRATIVE: CASE EVENT DATE: 201902
